FAERS Safety Report 8372272-2 (Version None)
Quarter: 2012Q2

REPORT INFORMATION
  Report Type: 
  Country: None (occurrence: None)
  Receive Date: 20120521
  Receipt Date: 20120511
  Transmission Date: 20120825
  Serious: Yes (Other)
  Sender: FDA-Public Use
  Company Number: US-AMGEN-USASP2012030388

PATIENT
  Sex: Female

DRUGS (1)
  1. ENBREL [Suspect]
     Indication: RHEUMATOID ARTHRITIS
     Dosage: UNK MG, QWK
     Dates: start: 20030101, end: 20110101

REACTIONS (4)
  - SALIVARY GLAND CANCER [None]
  - PREGNANCY [None]
  - NASOPHARYNGITIS [None]
  - RHEUMATOID ARTHRITIS [None]
